FAERS Safety Report 24368819 (Version 1)
Quarter: 2024Q3

REPORT INFORMATION
  Report Type: Report from Study
  Country: CN (occurrence: CN)
  Receive Date: 20240927
  Receipt Date: 20240927
  Transmission Date: 20241017
  Serious: Yes (Hospitalization)
  Sender: ABBVIE
  Company Number: CN-ABBVIE-5393549

PATIENT
  Age: 35 Year
  Sex: Male
  Weight: 65 kg

DRUGS (28)
  1. HUMIRA [Suspect]
     Active Substance: ADALIMUMAB
     Indication: Crohn^s disease
     Dosage: FORM STRENGTH: 80 MILLIGRAM
     Route: 058
     Dates: start: 20230818, end: 20230818
  2. HUMIRA [Suspect]
     Active Substance: ADALIMUMAB
     Dosage: FORM STRENGTH: 40 MILLIGRAM
     Route: 058
     Dates: start: 20230804, end: 20230804
  3. HUMIRA [Suspect]
     Active Substance: ADALIMUMAB
     Dosage: FORM STRENGTH: 40 MILLIGRAM
     Route: 058
     Dates: start: 20230901, end: 20240118
  4. HUMIRA [Suspect]
     Active Substance: ADALIMUMAB
     Dosage: FORM STRENGTH: 40 MILLIGRAM
     Route: 058
     Dates: start: 20240205, end: 20240802
  5. HUMIRA [Suspect]
     Active Substance: ADALIMUMAB
     Dosage: FORM STRENGTH: 40 MILLIGRAM
     Route: 058
     Dates: start: 20240805, end: 20240823
  6. ISONIAZID [Concomitant]
     Active Substance: ISONIAZID
     Indication: Infection prophylaxis
     Route: 048
     Dates: start: 20230804
  7. FLURBIPROFEN AXETIL [Concomitant]
     Active Substance: FLURBIPROFEN AXETIL
     Indication: Procedural pain
     Route: 042
     Dates: start: 20230803, end: 20230804
  8. AZATHIOPRINE [Concomitant]
     Active Substance: AZATHIOPRINE
     Indication: Crohn^s disease
     Route: 048
     Dates: start: 20230803, end: 20230804
  9. RECOMBINANT HUMAN BASIC FIBROBLAST GROWTH FACTOR FOR EXTERNAL USE [Concomitant]
     Indication: Anal abscess
  10. 3 % Hydrogen peroxide, Solution [Concomitant]
     Indication: Anal abscess
  11. SUFENTANIL CITRATE [Concomitant]
     Active Substance: SUFENTANIL CITRATE
     Indication: Endoscopy gastrointestinal
     Route: 042
     Dates: start: 20240812, end: 20240812
  12. METRONIDAZOLE [Concomitant]
     Active Substance: METRONIDAZOLE
     Indication: Anal abscess
     Route: 041
     Dates: start: 20230802, end: 20230802
  13. HYDROGEN PEROXIDE [Concomitant]
     Active Substance: HYDROGEN PEROXIDE
     Indication: Abscess drainage
     Dates: start: 20230802, end: 20230802
  14. DEXTROSE\SODIUM CHLORIDE [Concomitant]
     Active Substance: DEXTROSE\SODIUM CHLORIDE
     Indication: Anal abscess
     Route: 041
     Dates: start: 20230802, end: 20230802
  15. VITAMIN K1 [Concomitant]
     Active Substance: PHYTONADIONE
     Indication: Anal abscess
  16. METRONIDAZOLE [Concomitant]
     Active Substance: METRONIDAZOLE
     Indication: Anal abscess
     Route: 048
     Dates: start: 20230803, end: 20230807
  17. LIDOCAINE HYDROCHLORIDE [Concomitant]
     Active Substance: LIDOCAINE HYDROCHLORIDE
     Indication: Anal abscess
     Dates: start: 20230802, end: 20230802
  18. CALCIUM CHLORIDE\POTASSIUM CHLORIDE\SODIUM CHLORIDE\SODIUM LACTATE [Concomitant]
     Active Substance: CALCIUM CHLORIDE\POTASSIUM CHLORIDE\SODIUM CHLORIDE\SODIUM LACTATE
     Indication: Anal abscess
     Route: 041
     Dates: start: 20230802, end: 20230802
  19. ROPIVACAINE HYDROCHLORIDE [Concomitant]
     Active Substance: ROPIVACAINE HYDROCHLORIDE
     Indication: Anal abscess
     Dates: start: 20230802, end: 20230802
  20. ESOMEPRAZOLE MAGNESIUM [Concomitant]
     Active Substance: ESOMEPRAZOLE MAGNESIUM
     Indication: Duodenal ulcer
  21. PROPOFOL [Concomitant]
     Active Substance: PROPOFOL
     Indication: Endoscopy gastrointestinal
     Route: 042
     Dates: start: 20240812, end: 20240812
  22. BATROXOBIN [Concomitant]
     Active Substance: BATROXOBIN
     Indication: Anal abscess
  23. CALCIUM CHLORIDE [Concomitant]
     Active Substance: CALCIUM CHLORIDE
     Indication: Anal abscess
     Route: 041
     Dates: start: 20230802, end: 20230802
  24. KYTRIL [Concomitant]
     Active Substance: GRANISETRON HYDROCHLORIDE
     Indication: Gastrointestinal disorder prophylaxis
     Dates: start: 20230802, end: 20230802
  25. MANNITOL [Concomitant]
     Active Substance: MANNITOL
     Indication: Bowel preparation
     Route: 048
     Dates: start: 20240812, end: 20240812
  26. POTASSIUM CHLORIDE [Concomitant]
     Active Substance: POTASSIUM CHLORIDE
     Indication: Anal abscess
     Route: 041
     Dates: start: 20230802, end: 20230802
  27. RACEANISODAMINE HYDROCHLORIDE [Concomitant]
     Indication: Computerised tomogram intestine
     Route: 042
     Dates: start: 20240812, end: 20240812
  28. SIMETHICONE (DIMETHICONE) [Concomitant]
     Active Substance: DIMETHICONE
     Indication: Endoscopy gastrointestinal
     Dosage: EMULSIONS
     Route: 048
     Dates: start: 20240812, end: 20240812

REACTIONS (4)
  - Anal abscess [Not Recovered/Not Resolved]
  - Hypercholesterolaemia [Recovered/Resolved]
  - Hepatic function abnormal [Recovered/Resolved]
  - Duodenal ulcer [Not Recovered/Not Resolved]

NARRATIVE: CASE EVENT DATE: 20230815
